FAERS Safety Report 9458964 (Version 1)
Quarter: 2013Q3

REPORT INFORMATION
  Report Type: Spontaneous
  Country: US (occurrence: US)
  Receive Date: 20130814
  Receipt Date: 20130814
  Transmission Date: 20140515
  Serious: No
  Sender: FDA-Public Use
  Company Number: US-TARO-2013P1002303

PATIENT
  Age: 65 Year
  Sex: Male

DRUGS (3)
  1. DESONIDE CREAM USP 0.05% [Suspect]
     Route: 061
     Dates: start: 20110608, end: 20110619
  2. DESONIDE CREAM USP 0.05% [Suspect]
     Route: 061
     Dates: start: 20110608, end: 20110619
  3. CLEOCIN-T LOTION [Concomitant]

REACTIONS (3)
  - Dermatitis contact [Recovered/Resolved]
  - Erythema [Recovered/Resolved]
  - Photosensitivity reaction [Recovered/Resolved]
